FAERS Safety Report 8088272-6 (Version None)
Quarter: 2012Q1

REPORT INFORMATION
  Report Type: 
  Country: None (occurrence: None)
  Receive Date: 20120128
  Receipt Date: 20110609
  Transmission Date: 20120608
  Serious: Yes (Hospitalization, Other)
  Sender: FDA-Public Use
  Company Number: US-ABBOTT-11P-163-0721234-00

PATIENT
  Sex: Male

DRUGS (9)
  1. HUMIRA [Suspect]
     Indication: PSORIASIS
     Dates: start: 20091001, end: 20100201
  2. UROXATRAL [Concomitant]
     Indication: DYSURIA
  3. HUMIRA [Suspect]
     Dates: start: 20110101, end: 20110517
  4. OMEPRAZOLE [Concomitant]
     Indication: GASTROOESOPHAGEAL REFLUX DISEASE
  5. WARFARIN SODIUM [Concomitant]
     Indication: THROMBOSIS
  6. UROXATRAL [Concomitant]
     Indication: PROSTATOMEGALY
  7. HUMIRA [Suspect]
  8. LISINOPRIL [Concomitant]
     Indication: BLOOD PRESSURE
  9. PRAVASTATIN [Concomitant]
     Indication: BLOOD CHOLESTEROL

REACTIONS (4)
  - PSORIASIS [None]
  - BACTERIAL INFECTION [None]
  - CHOLECYSTECTOMY [None]
  - CELLULITIS [None]
